FAERS Safety Report 9044025 (Version 1)
Quarter: 2013Q1

REPORT INFORMATION
  Report Type: Report from Study
  Country: US (occurrence: US)
  Receive Date: 20130130
  Receipt Date: 20130130
  Transmission Date: 20140127
  Serious: No
  Sender: FDA-Public Use
  Company Number: US-ABBOTT-12P-163-0945908-00

PATIENT
  Age: 49 Year
  Sex: Male

DRUGS (17)
  1. HUMIRA 40 MG/0.8 ML PEN [Suspect]
     Indication: CROHN^S DISEASE
     Dates: start: 20120312
  2. PRISTIQ [Suspect]
     Indication: DEPRESSION
     Dates: start: 201206, end: 201206
  3. PRISTIQ [Suspect]
  4. PRISTIQ [Suspect]
  5. SEROQUEL [Concomitant]
     Indication: INSOMNIA
     Dosage: AT BEDTIME
  6. HYDROXYZINE PAMOATE [Concomitant]
     Indication: DEPRESSION
     Dosage: 250MG-2 DURING THE DAY AND 2 AT BEDTIME
  7. DILAUDID [Concomitant]
     Indication: ARTHRALGIA
  8. HYTRIN [Concomitant]
     Indication: INSOMNIA
     Dosage: AT BEDTIME
  9. REMERON [Concomitant]
     Indication: INSOMNIA
     Dosage: AT BEDTIME
  10. SYNTHROID [Concomitant]
     Indication: THYROID DISORDER
     Dosage: IN THE MORNING
  11. PRILOSEC [Concomitant]
     Indication: GASTROOESOPHAGEAL REFLUX DISEASE
     Dosage: 20MG IN THE EVENING
  12. FLEXERIL [Concomitant]
     Indication: PAIN
  13. MORPHINE [Concomitant]
     Indication: PAIN
     Dosage: 1 IN THE MORNING AND 2 IN THE EVENING
  14. MECLIZINE [Concomitant]
     Indication: PRODUCT USED FOR UNKNOWN INDICATION
  15. PROCARDIA [Concomitant]
     Indication: HYPERTENSION
     Dosage: 180MG DAILY
  16. ENTOCORT [Concomitant]
     Indication: PRODUCT USED FOR UNKNOWN INDICATION
  17. METOPROLOL [Concomitant]
     Indication: BLOOD PRESSURE

REACTIONS (4)
  - Feeling abnormal [Not Recovered/Not Resolved]
  - Blood glucose increased [Not Recovered/Not Resolved]
  - Injection site bruising [Not Recovered/Not Resolved]
  - Injection site bruising [Not Recovered/Not Resolved]
